FAERS Safety Report 5988375-3 (Version None)
Quarter: 2008Q4

REPORT INFORMATION
  Report Type: 
  Country: None (occurrence: None)
  Receive Date: 20081210
  Receipt Date: 20081204
  Transmission Date: 20090506
  Serious: Yes (Hospitalization)
  Sender: FDA-Public Use
  Company Number: DE-BAYER-200818735GPV

PATIENT
  Age: 26 Year
  Sex: Male
  Weight: 75 kg

DRUGS (14)
  1. AVELOX 400 MG QD IV [Suspect]
     Indication: ABSCESS
     Dosage: TOTAL DAILY DOSE: 400 MG  UNIT DOSE: 400 MG
     Route: 042
     Dates: start: 20080510, end: 20080512
  2. AVELOX 400 MG QD PO [Suspect]
     Indication: ABSCESS
     Dosage: TOTAL DAILY DOSE: 400 MG  UNIT DOSE: 400 MG
     Route: 048
     Dates: start: 20080512, end: 20080516
  3. PANTOZOL [Concomitant]
     Indication: PROPHYLAXIS
     Route: 048
     Dates: start: 20080510, end: 20080512
  4. CLEXANE [Concomitant]
     Indication: THROMBOSIS PROPHYLAXIS
     Route: 058
     Dates: start: 20080510, end: 20080512
  5. PERFALGAN [Concomitant]
     Indication: PAIN
     Route: 042
     Dates: start: 20080509, end: 20080509
  6. PERFALGAN [Concomitant]
     Route: 042
     Dates: start: 20080519, end: 20080520
  7. ACETAMINOPHEN [Concomitant]
     Indication: PAIN
     Route: 048
     Dates: start: 20080511, end: 20080511
  8. NOVALGIN [Concomitant]
     Indication: PAIN
     Route: 042
     Dates: start: 20080509, end: 20080509
  9. NOVALGIN [Concomitant]
     Route: 042
     Dates: start: 20080520, end: 20080520
  10. NOVALGIN [Concomitant]
     Route: 042
     Dates: start: 20080521, end: 20080521
  11. DIPIDOLOR [Concomitant]
     Indication: PAIN
     Route: 042
     Dates: start: 20080509, end: 20080509
  12. DIPIDOLOR [Concomitant]
     Route: 058
     Dates: start: 20080519, end: 20080519
  13. DIPIDOLOR [Concomitant]
     Route: 042
     Dates: start: 20080521, end: 20080521
  14. FORTECORTIN [Concomitant]
     Indication: THERAPEUTIC PROCEDURE
     Route: 042
     Dates: start: 20080509, end: 20080509

REACTIONS (1)
  - WOUND INFECTION [None]
